FAERS Safety Report 6512367-9 (Version None)
Quarter: 2009Q4

REPORT INFORMATION
  Report Type: 
  Country: None (occurrence: None)
  Receive Date: 20091222
  Receipt Date: 20090709
  Transmission Date: 20100525
  Serious: No
  Sender: FDA-Public Use
  Company Number: US-ASTRAZENECA-2009UW19296

PATIENT
  Sex: Male
  Weight: 74.8 kg

DRUGS (3)
  1. CRESTOR [Suspect]
     Route: 048
  2. JANUVIA [Concomitant]
  3. PRANDIN [Concomitant]

REACTIONS (1)
  - HYPERSENSITIVITY [None]
